FAERS Safety Report 16113696 (Version 1)
Quarter: 2019Q1

REPORT INFORMATION
  Report Type: Spontaneous
  Country: US (occurrence: US)
  Receive Date: 20190325
  Receipt Date: 20190325
  Transmission Date: 20190418
  Serious: No
  Sender: FDA-Public Use
  Company Number: US-ALLERGAN-1831146US

PATIENT
  Sex: Female

DRUGS (3)
  1. ASPIRIN. [Concomitant]
     Active Substance: ASPIRIN
     Indication: PRODUCT USED FOR UNKNOWN INDICATION
     Dosage: UNK, PRN
     Route: 048
  2. LUMIGAN [Suspect]
     Active Substance: BIMATOPROST
     Indication: GLAUCOMA
  3. LUMIGAN [Suspect]
     Active Substance: BIMATOPROST
     Indication: INTRAOCULAR PRESSURE TEST
     Dosage: UNK
     Route: 047
     Dates: end: 201806

REACTIONS (8)
  - Headache [Recovering/Resolving]
  - Dizziness [Not Recovered/Not Resolved]
  - Eye pain [Unknown]
  - Head discomfort [Recovering/Resolving]
  - Disorientation [Not Recovered/Not Resolved]
  - Muscle spasms [Unknown]
  - Chest pain [Unknown]
  - Dyspnoea [Unknown]
